FAERS Safety Report 14377594 (Version 2)
Quarter: 2018Q1

REPORT INFORMATION
  Report Type: Spontaneous
  Country: FR (occurrence: FR)
  Receive Date: 20180111
  Receipt Date: 20180227
  Transmission Date: 20180509
  Serious: Yes (Hospitalization, Other)
  Sender: FDA-Public Use
  Company Number: FR-RARE DISEASE THERAPEUTICS, INC.-2039938

PATIENT
  Age: 6 Year
  Sex: Male

DRUGS (23)
  1. VINCRISTINE [Suspect]
     Active Substance: VINCRISTINE
     Route: 065
     Dates: start: 20161205
  2. VINCRISTINE [Suspect]
     Active Substance: VINCRISTINE
     Route: 065
     Dates: start: 20170120
  3. VINCRISTINE [Suspect]
     Active Substance: VINCRISTINE
     Route: 065
     Dates: start: 20170113
  4. METHOTREXATE. [Suspect]
     Active Substance: METHOTREXATE
     Route: 042
     Dates: start: 20161215
  5. METHOTREXATE. [Suspect]
     Active Substance: METHOTREXATE
     Route: 042
     Dates: start: 20170510
  6. METHOTREXATE. [Suspect]
     Active Substance: METHOTREXATE
     Route: 042
     Dates: start: 20170320, end: 20170510
  7. VINCRISTINE [Suspect]
     Active Substance: VINCRISTINE
     Route: 065
     Dates: start: 20161219
  8. METHOTREXATE. [Suspect]
     Active Substance: METHOTREXATE
     Route: 042
     Dates: start: 20170320, end: 20170510
  9. PEGASPARGASE [Suspect]
     Active Substance: PEGASPARGASE
     Route: 065
     Dates: start: 20161202
  10. PEGASPARGASE [Suspect]
     Active Substance: PEGASPARGASE
     Route: 065
  11. CYTARABINE. [Suspect]
     Active Substance: CYTARABINE
     Route: 065
  12. PURIXAN [Suspect]
     Active Substance: MERCAPTOPURINE
     Indication: ACUTE LYMPHOCYTIC LEUKAEMIA
     Route: 048
     Dates: start: 20170313, end: 20170517
  13. METHOTREXATE. [Suspect]
     Active Substance: METHOTREXATE
     Route: 042
     Dates: start: 20170426
  14. METHOTREXATE. [Suspect]
     Active Substance: METHOTREXATE
     Route: 042
     Dates: start: 20170403
  15. CYCLOPHOSPHAMIDE. [Suspect]
     Active Substance: CYCLOPHOSPHAMIDE
     Route: 065
     Dates: start: 20161128, end: 20161219
  16. METHOTREXATE. [Suspect]
     Active Substance: METHOTREXATE
     Route: 050
     Dates: start: 20170321, end: 20170511
  17. PEGASPARGASE [Suspect]
     Active Substance: PEGASPARGASE
     Route: 065
     Dates: start: 20170113
  18. PEGASPARGASE [Suspect]
     Active Substance: PEGASPARGASE
     Route: 065
     Dates: start: 20161216
  19. VINCRISTINE [Suspect]
     Active Substance: VINCRISTINE
     Route: 065
     Dates: start: 20161128
  20. VINCRISTINE [Suspect]
     Active Substance: VINCRISTINE
     Route: 065
     Dates: start: 20161212
  21. CYCLOPHOSPHAMIDE. [Suspect]
     Active Substance: CYCLOPHOSPHAMIDE
     Route: 065
     Dates: start: 20161230
  22. BACTRIM [Concomitant]
     Active Substance: SULFAMETHOXAZOLE\TRIMETHOPRIM
     Dates: start: 20161129
  23. METHOTREXATE. [Suspect]
     Active Substance: METHOTREXATE
     Route: 042
     Dates: start: 20161203

REACTIONS (1)
  - Gastroenteritis rotavirus [Recovered/Resolved]

NARRATIVE: CASE EVENT DATE: 20170417
